FAERS Safety Report 6742109-3 (Version None)
Quarter: 2010Q2

REPORT INFORMATION
  Report Type: 
  Country: None (occurrence: None)
  Receive Date: 20100526
  Receipt Date: 20100517
  Transmission Date: 20101027
  Serious: Yes (Hospitalization)
  Sender: FDA-Public Use
  Company Number: PHEH2010US03196

PATIENT
  Sex: Male
  Weight: 72.57 kg

DRUGS (1)
  1. EXJADE [Suspect]
     Indication: MYELODYSPLASTIC SYNDROME
     Dosage: 2250 MG, QD
     Route: 048
     Dates: start: 20080110, end: 20100209

REACTIONS (15)
  - ANAEMIA [None]
  - BLOOD IRON INCREASED [None]
  - DEHYDRATION [None]
  - DYSPHAGIA [None]
  - FUNGAL INFECTION [None]
  - GALLBLADDER DISORDER [None]
  - GASTROINTESTINAL HAEMORRHAGE [None]
  - HAEMATEMESIS [None]
  - HAEMORRHAGE [None]
  - HEPATOMEGALY [None]
  - HYPOPHAGIA [None]
  - MALLORY-WEISS SYNDROME [None]
  - MELAENA [None]
  - OESOPHAGEAL CANDIDIASIS [None]
  - OESOPHAGEAL RUPTURE [None]
